FAERS Safety Report 5415253-0 (Version None)
Quarter: 2007Q3

REPORT INFORMATION
  Report Type: 
  Country: None (occurrence: None)
  Receive Date: 20070815
  Receipt Date: 20070731
  Transmission Date: 20080115
  Serious: Yes (Hospitalization)
  Sender: FDA-Public Use
  Company Number: SE-ELI_LILLY_AND_COMPANY-SE200708001285

PATIENT
  Age: 70 Year
  Sex: Male

DRUGS (9)
  1. GEMZAR [Suspect]
     Dosage: UNK, UNKNOWN
     Route: 065
     Dates: start: 20061130
  2. GEMZAR [Suspect]
     Dosage: UNK, UNKNOWN
     Route: 065
     Dates: start: 20070410
  3. GEMZAR [Suspect]
     Dosage: UNK, UNKNOWN
     Route: 065
     Dates: start: 20070528, end: 20070101
  4. ALVEDON [Concomitant]
     Dosage: 500 MG, UNKNOWN
     Route: 048
  5. METOPROLOL TARTRATE [Concomitant]
     Dosage: UNK, UNKNOWN
     Route: 065
  6. COZAAR [Concomitant]
     Dosage: 50 MG, UNKNOWN
     Route: 048
  7. BEHEPAN [Concomitant]
     Dosage: 1 MG, UNKNOWN
     Route: 048
  8. FURIX [Concomitant]
     Dosage: 40 MG, UNKNOWN
     Route: 048
  9. FRAGMIN [Concomitant]
     Dosage: 18000 IU, UNKNOWN
     Route: 065

REACTIONS (2)
  - OEDEMA [None]
  - WEIGHT INCREASED [None]
